FAERS Safety Report 8621713-1 (Version None)
Quarter: 2012Q3

REPORT INFORMATION
  Report Type: 
  Country: None (occurrence: None)
  Receive Date: 20120821
  Receipt Date: 20120821
  Transmission Date: 20120928
  Serious: Yes (Life-Threatening)
  Sender: FDA-Public Use
  Company Number: None

PATIENT
  Age: 63 Year
  Sex: Male

DRUGS (1)
  1. TACROLIMUS [Suspect]
     Indication: TRANSPLANT
     Dosage: 2 CAPS TWICE A DAY OR AS DIRECTED
     Dates: start: 20120521

REACTIONS (2)
  - PRODUCT QUALITY ISSUE [None]
  - DRUG LEVEL DECREASED [None]
